FAERS Safety Report 9726037 (Version 1)
Quarter: 2013Q4

REPORT INFORMATION
  Report Type: Spontaneous
  Country: GB (occurrence: None)
  Receive Date: 20131127
  Receipt Date: 20131127
  Transmission Date: 20140711
  Serious: Yes (Death, Other)
  Sender: FDA-Public Use
  Company Number: 2013-003732

PATIENT
  Age: 21 Year
  Sex: Female
  Weight: 65 kg

DRUGS (2)
  1. SARAFEM [Suspect]
     Indication: DEPRESSION
     Route: 048
     Dates: start: 20120914, end: 20121205
  2. IMIGRAN [Suspect]
     Indication: DEPRESSION
     Route: 048
     Dates: start: 20120914, end: 20121205

REACTIONS (4)
  - Serotonin syndrome [None]
  - Suicidal ideation [None]
  - Drug interaction [None]
  - Completed suicide [None]
